FAERS Safety Report 7277637-8 (Version None)
Quarter: 2011Q1

REPORT INFORMATION
  Report Type: 
  Country: None (occurrence: None)
  Receive Date: 20110207
  Receipt Date: 20110128
  Transmission Date: 20110831
  Serious: Yes (Hospitalization)
  Sender: FDA-Public Use
  Company Number: JP-ASTELLAS-2011JP000731

PATIENT
  Age: 3 Year
  Sex: Female

DRUGS (3)
  1. COLD MEDICINE [Concomitant]
     Indication: NASOPHARYNGITIS
     Route: 048
  2. PROGRAF [Suspect]
     Indication: IMMUNOSUPPRESSANT DRUG THERAPY
     Route: 065
  3. PREDNISOLONE [Concomitant]
     Indication: IMMUNOSUPPRESSANT DRUG THERAPY
     Route: 065

REACTIONS (2)
  - NASOPHARYNGITIS [None]
  - GLOMERULONEPHRITIS RAPIDLY PROGRESSIVE [None]
